FAERS Safety Report 12966442 (Version 1)
Quarter: 2016Q4

REPORT INFORMATION
  Report Type: Spontaneous
  Country: US (occurrence: US)
  Receive Date: 20161121
  Receipt Date: 20161121
  Transmission Date: 20170207
  Serious: No
  Sender: FDA-Public Use
  Company Number: None

PATIENT
  Age: 51 Year
  Sex: Female

DRUGS (1)
  1. INFLIXIMAB [Suspect]
     Active Substance: INFLIXIMAB
     Indication: CROHN^S DISEASE
     Dosage: INFLIXIMAB 345MG - INTRAVENOUS - FREQUENCY 0,2,6, Q8WKS
     Route: 042
     Dates: start: 20161019, end: 20161103

REACTIONS (5)
  - Infusion related reaction [None]
  - Erythema [None]
  - Flushing [None]
  - Chest discomfort [None]
  - Cough [None]

NARRATIVE: CASE EVENT DATE: 20161103
